FAERS Safety Report 4493946-X (Version None)
Quarter: 2004Q4

REPORT INFORMATION
  Report Type: 
  Country: None (occurrence: None)
  Receive Date: 20041105
  Receipt Date: 20020712
  Transmission Date: 20050328
  Serious: Yes (Other)
  Sender: FDA-Public Use
  Company Number: US-AMGEN-US013349

PATIENT
  Sex: Female
  Weight: 58.6 kg

DRUGS (6)
  1. EPOGEN [Suspect]
     Indication: RENAL FAILURE CHRONIC
     Route: 058
     Dates: start: 20010830, end: 20020528
  2. ARANESP [Concomitant]
     Indication: RENAL FAILURE CHRONIC
     Dates: start: 20021126, end: 20030122
  3. NIFEREX [Concomitant]
  4. PLAVIX [Concomitant]
  5. FOSAMAX [Concomitant]
  6. INSULIN [Concomitant]

REACTIONS (13)
  - ALANINE AMINOTRANSFERASE INCREASED [None]
  - ANAEMIA [None]
  - ANTI-ERYTHROPOIETIN ANTIBODY POSITIVE [None]
  - ASPARTATE AMINOTRANSFERASE INCREASED [None]
  - BLOOD ALKALINE PHOSPHATASE INCREASED [None]
  - BLOOD BILIRUBIN INCREASED [None]
  - CONDITION AGGRAVATED [None]
  - DIZZINESS [None]
  - DRUG INEFFECTIVE [None]
  - DYSPNOEA [None]
  - HEPATIC ENZYME INCREASED [None]
  - THERAPEUTIC RESPONSE DECREASED [None]
  - VERTIGO [None]
